FAERS Safety Report 5662004-0 (Version None)
Quarter: 2008Q1

REPORT INFORMATION
  Report Type: 
  Country: None (occurrence: None)
  Receive Date: 20080201
  Receipt Date: 20071010
  Transmission Date: 20080703
  Serious: Yes (Other)
  Sender: FDA-Public Use
  Company Number: 522481

PATIENT
  Age: 45 Year
  Sex: Female
  Weight: 81.6 kg

DRUGS (4)
  1. COPEGUS [Suspect]
     Indication: HEPATITIS C
     Dosage: 2 PER DAY ORAL
     Route: 048
     Dates: start: 20070917, end: 20070924
  2. REYATAZ [Suspect]
     Indication: HIV INFECTION
     Dosage: 1 PER DAY ORAL
     Route: 048
     Dates: start: 20060524
  3. PEGASYS [Concomitant]
  4. COMBIVIR [Concomitant]

REACTIONS (1)
  - BLOOD BILIRUBIN INCREASED [None]
